FAERS Safety Report 6490730-2 (Version None)
Quarter: 2009Q4

REPORT INFORMATION
  Report Type: 
  Country: None (occurrence: None)
  Receive Date: 20091211
  Receipt Date: 20091203
  Transmission Date: 20100525
  Serious: Yes (Other)
  Sender: FDA-Public Use
  Company Number: D0065152A

PATIENT
  Sex: Female

DRUGS (1)
  1. IMIGRAN [Suspect]
     Route: 048

REACTIONS (4)
  - CIRCULATORY COLLAPSE [None]
  - ILL-DEFINED DISORDER [None]
  - NAUSEA [None]
  - VOMITING [None]
